FAERS Safety Report 4791781-6 (Version None)
Quarter: 2005Q4

REPORT INFORMATION
  Report Type: 
  Country: None (occurrence: None)
  Receive Date: 20051005
  Receipt Date: 20050915
  Transmission Date: 20060501
  Serious: Yes (Death, Hospitalization, Other)
  Sender: FDA-Public Use
  Company Number: EWC050443479

PATIENT
  Age: 48 Year
  Sex: Female
  Weight: 64 kg

DRUGS (4)
  1. HUMATROPE [Suspect]
     Indication: GROWTH HORMONE DEFICIENCY
     Dosage: 2 IU/1 DAY
     Dates: start: 20020901, end: 20050109
  2. ASTRIX (ACETYLSALICYLIC ACID) [Concomitant]
  3. BETALOC (METOPROLOL TARTRATE) [Concomitant]
  4. AMLODIPINE [Concomitant]

REACTIONS (12)
  - DIPLOPIA [None]
  - ESSENTIAL HYPERTENSION [None]
  - FACIAL PARESIS [None]
  - HEMIPARESIS [None]
  - MALIGNANT PITUITARY TUMOUR [None]
  - MENINGIOMA [None]
  - METASTASES TO CENTRAL NERVOUS SYSTEM [None]
  - MULTI-ORGAN DISORDER [None]
  - NEOPLASM PROGRESSION [None]
  - NERVOUS SYSTEM DISORDER [None]
  - RESPIRATORY FAILURE [None]
  - VERTEBROBASILAR INSUFFICIENCY [None]
